FAERS Safety Report 8977860 (Version 1)
Quarter: 2012Q4

REPORT INFORMATION
  Report Type: 
  Country: IT (occurrence: IT)
  Receive Date: 20121220
  Receipt Date: 20121220
  Transmission Date: 20130627
  Serious: Yes (Death)
  Sender: FDA-Public Use
  Company Number: PHHY2012IT116753

PATIENT
  Sex: Male

DRUGS (2)
  1. ZOMETA [Suspect]
     Indication: METASTASES TO BONE
     Dosage: 4 mg, monthly
     Route: 042
     Dates: start: 20060101, end: 20080101
  2. ZOMETA [Suspect]
     Dates: start: 200809, end: 200909

REACTIONS (1)
  - Osteonecrosis of jaw [Fatal]
